FAERS Safety Report 9529581 (Version 2)
Quarter: 2013Q3

REPORT INFORMATION
  Report Type: Report from Study
  Country: US (occurrence: US)
  Receive Date: 20130917
  Receipt Date: 20130923
  Transmission Date: 20140515
  Serious: Yes (Other)
  Sender: FDA-Public Use
  Company Number: US-BAYER-2013-111805

PATIENT
  Age: 52 Year
  Sex: Female

DRUGS (1)
  1. MIRENA [Suspect]
     Indication: MENORRHAGIA
     Dosage: 20 MCG/24HR, CONT
     Route: 015
     Dates: start: 20130701, end: 20130820

REACTIONS (6)
  - Device deployment issue [None]
  - Device difficult to use [None]
  - Device expulsion [Recovered/Resolved]
  - Device misuse [None]
  - Genital haemorrhage [Recovered/Resolved]
  - Device issue [None]
